FAERS Safety Report 25085274 (Version 1)
Quarter: 2025Q1

REPORT INFORMATION
  Report Type: Spontaneous
  Country: US (occurrence: US)
  Receive Date: 20250317
  Receipt Date: 20250317
  Transmission Date: 20250409
  Serious: No
  Sender: MILLICENT HOLDINGS
  Company Number: US-Millicent Holdings Ltd.-MILL20250113

PATIENT

DRUGS (1)
  1. FEMRING [Suspect]
     Active Substance: ESTRADIOL ACETATE
     Indication: Product used for unknown indication
     Route: 067
     Dates: start: 20250203

REACTIONS (3)
  - Bacterial vaginosis [Not Recovered/Not Resolved]
  - Product colour issue [None]
  - Product odour abnormal [None]

NARRATIVE: CASE EVENT DATE: 20250301
